FAERS Safety Report 13567385 (Version 4)
Quarter: 2017Q3

REPORT INFORMATION
  Report Type: Report from Study
  Country: NO (occurrence: NO)
  Receive Date: 20170522
  Receipt Date: 20170929
  Transmission Date: 20171127
  Serious: Yes (Other)
  Sender: FDA-Public Use
  Company Number: PHHO2017NO008034

PATIENT
  Age: 65 Year
  Sex: Female

DRUGS (2)
  1. SIGNIFOR LAR [Suspect]
     Active Substance: PASIREOTIDE
     Indication: PRODUCT USED FOR UNKNOWN INDICATION
     Dosage: 40 MG, QMO
     Route: 030
     Dates: start: 20170213, end: 20170407
  2. CORTISON [Concomitant]
     Active Substance: CORTISONE ACETATE
     Indication: HYPOTHALAMO-PITUITARY DISORDER
     Dosage: 12.5 MG, BID
     Route: 065

REACTIONS (2)
  - Glycosylated haemoglobin increased [Unknown]
  - Hyperglycaemia [Not Recovered/Not Resolved]

NARRATIVE: CASE EVENT DATE: 20170504
